FAERS Safety Report 9938110 (Version 1)
Quarter: 2014Q1

REPORT INFORMATION
  Report Type: Spontaneous
  Country: DE (occurrence: DE)
  Receive Date: 20140303
  Receipt Date: 20140303
  Transmission Date: 20141002
  Serious: Yes (Other)
  Sender: FDA-Public Use
  Company Number: DE-ROCHE-1355400

PATIENT
  Age: 62 Year
  Sex: Female
  Weight: 68 kg

DRUGS (6)
  1. BONVIVA [Suspect]
     Indication: PRODUCT USED FOR UNKNOWN INDICATION
     Route: 042
  2. ASS100 [Concomitant]
  3. DEKRISTOL [Concomitant]
  4. NITROLINGUAL [Concomitant]
     Route: 065
  5. DIAZEPAM [Concomitant]
     Route: 065
  6. LEVOFLOXACIN [Concomitant]
     Route: 065
     Dates: start: 201312

REACTIONS (5)
  - Movement disorder [Not Recovered/Not Resolved]
  - Local swelling [Not Recovered/Not Resolved]
  - Pain [Not Recovered/Not Resolved]
  - Skin discolouration [Not Recovered/Not Resolved]
  - Inflammation [Not Recovered/Not Resolved]
